FAERS Safety Report 7236703-3 (Version None)
Quarter: 2011Q1

REPORT INFORMATION
  Report Type: 
  Country: None (occurrence: None)
  Receive Date: 20110120
  Receipt Date: 20110113
  Transmission Date: 20110831
  Serious: Yes (Hospitalization)
  Sender: FDA-Public Use
  Company Number: CHPA2011US01019

PATIENT
  Age: 64 Year
  Sex: Female
  Weight: 39.909 kg

DRUGS (4)
  1. PRIVATE LABEL [Suspect]
     Dosage: 14 MG, QD
     Route: 062
     Dates: start: 20050101, end: 20050101
  2. PRIVATE LABEL [Suspect]
     Indication: SMOKING CESSATION THERAPY
     Dosage: UNK, UNK
     Route: 062
     Dates: start: 20110101, end: 20110105
  3. PRIVATE LABEL [Suspect]
     Dosage: 7 MG, QD
     Route: 062
     Dates: start: 20050101, end: 20050101
  4. PRIVATE LABEL [Suspect]
     Dosage: 21 MG, QD
     Route: 062
     Dates: start: 20060101, end: 20060101

REACTIONS (3)
  - OXYGEN CONSUMPTION DECREASED [None]
  - INAPPROPRIATE SCHEDULE OF DRUG ADMINISTRATION [None]
  - APPLICATION SITE ERYTHEMA [None]
